FAERS Safety Report 6656786-9 (Version None)
Quarter: 2010Q1

REPORT INFORMATION
  Report Type: 
  Country: None (occurrence: None)
  Receive Date: 20100329
  Receipt Date: 20100318
  Transmission Date: 20100710
  Serious: Yes (Other)
  Sender: FDA-Public Use
  Company Number: GB-MERCK-0907GBR00027

PATIENT
  Sex: Female

DRUGS (3)
  1. ISENTRESS [Suspect]
     Indication: HIV INFECTION
     Route: 048
     Dates: start: 20090310
  2. DARUNAVIR AND RITONAVIR [Concomitant]
     Route: 065
     Dates: start: 20090310
  3. ZIDOVUDINE [Concomitant]
     Route: 065
     Dates: start: 20090318

REACTIONS (2)
  - COMPLICATION OF DELIVERY [None]
  - DRUG EXPOSURE DURING PREGNANCY [None]
